FAERS Safety Report 10228624 (Version 1)
Quarter: 2014Q2

REPORT INFORMATION
  Report Type: Spontaneous
  Country: US (occurrence: US)
  Receive Date: 20140610
  Receipt Date: 20140610
  Transmission Date: 20141212
  Serious: Yes (Hospitalization, Other)
  Sender: FDA-Public Use
  Company Number: US-B.I. PHARMACEUTICALS,INC./RIDGEFIELD-2014-BI-25612BP

PATIENT
  Age: 65 Year
  Sex: Female

DRUGS (3)
  1. ATROVENT [Suspect]
     Indication: PRODUCT USED FOR UNKNOWN INDICATION
     Route: 065
  2. ADVAIR [Suspect]
     Indication: ASTHMA
     Dosage: FORMULATION: MULTI-DOSE POWDER INHALER
     Route: 065
     Dates: start: 20081009
  3. VENTOLIN [Suspect]
     Indication: PRODUCT USED FOR UNKNOWN INDICATION
     Route: 065
     Dates: start: 20110202

REACTIONS (2)
  - Asthma [Unknown]
  - Respiratory distress [Unknown]
